FAERS Safety Report 20363597 (Version 8)
Quarter: 2022Q2

REPORT INFORMATION
  Report Type: Report from Study
  Country: CA (occurrence: CA)
  Receive Date: 20220121
  Receipt Date: 20220428
  Transmission Date: 20220721
  Serious: Yes (Other)
  Sender: FDA-Public Use
  Company Number: CA-BoehringerIngelheim-2022-BI-107981

PATIENT
  Age: 80 Year
  Sex: Female

DRUGS (3)
  1. OFEV [Suspect]
     Active Substance: NINTEDANIB
     Indication: Idiopathic pulmonary fibrosis
     Route: 048
     Dates: start: 20220106, end: 20220202
  2. OFEV [Suspect]
     Active Substance: NINTEDANIB
     Route: 048
     Dates: start: 20220202
  3. LOPERAMIDE [Suspect]
     Active Substance: LOPERAMIDE
     Indication: Product used for unknown indication

REACTIONS (20)
  - Syncope [Recovered/Resolved]
  - Hypertension [Recovering/Resolving]
  - Chills [Not Recovered/Not Resolved]
  - Depression [Not Recovered/Not Resolved]
  - Weight decreased [Unknown]
  - Illness [Not Recovered/Not Resolved]
  - Dyspnoea [Not Recovered/Not Resolved]
  - Headache [Not Recovered/Not Resolved]
  - Cough [Unknown]
  - Decreased appetite [Not Recovered/Not Resolved]
  - Asthenia [Not Recovered/Not Resolved]
  - Diarrhoea [Not Recovered/Not Resolved]
  - Nausea [Not Recovered/Not Resolved]
  - Abdominal pain upper [Unknown]
  - Fatigue [Recovering/Resolving]
  - Feeling abnormal [Unknown]
  - Back pain [Unknown]
  - Constipation [Unknown]
  - Malaise [Unknown]
  - Impaired quality of life [Unknown]

NARRATIVE: CASE EVENT DATE: 20220114
